FAERS Safety Report 17303116 (Version 1)
Quarter: 2020Q1

REPORT INFORMATION
  Report Type: Spontaneous
  Country: US (occurrence: US)
  Receive Date: 20200122
  Receipt Date: 20200122
  Transmission Date: 20200409
  Serious: Yes (Hospitalization)
  Sender: FDA-Public Use
  Company Number: US-PFIZER INC-2020031168

PATIENT
  Age: 63 Year
  Sex: Male

DRUGS (3)
  1. ICLUSIG [Concomitant]
     Active Substance: PONATINIB
     Dosage: MONTH 2 ADHERENCE CALL COMPLETED
  2. BOSULIF [Suspect]
     Active Substance: BOSUTINIB MONOHYDRATE
     Indication: CHRONIC MYELOID LEUKAEMIA
     Dosage: UNK
  3. ICLUSIG [Concomitant]
     Active Substance: PONATINIB
     Dosage: 30 MG, DAILY

REACTIONS (1)
  - Peripheral swelling [Unknown]
